FAERS Safety Report 16933256 (Version 5)
Quarter: 2021Q2

REPORT INFORMATION
  Report Type: Spontaneous
  Country: FR (occurrence: FR)
  Receive Date: 20191018
  Receipt Date: 20210623
  Transmission Date: 20210716
  Serious: Yes (Other)
  Sender: FDA-Public Use
  Company Number: FR-AUROBINDO-AUR-APL-2019-067577

PATIENT
  Age: 39 Year
  Sex: Female
  Weight: 55 kg

DRUGS (15)
  1. VORICONAZOLE. [Suspect]
     Active Substance: VORICONAZOLE
     Indication: CEREBRAL ASPERGILLOSIS
     Dosage: 650 MILLIGRAM, ONCE A DAY,650 MG PER DAY DIVIDED INTO 2 INTAKES
     Route: 065
  2. VORICONAZOLE. [Suspect]
     Active Substance: VORICONAZOLE
     Dosage: 600 MILLIGRAM, ONCE A DAY 300 MG, BID
     Route: 048
  3. BENDAMUSTINE HYDROCHLORIDE. [Suspect]
     Active Substance: BENDAMUSTINE HYDROCHLORIDE
     Indication: CHRONIC LYMPHOCYTIC LEUKAEMIA
     Dosage: ONE CYCLE
     Route: 042
  4. AMPHOTERICIN B. [Suspect]
     Active Substance: AMPHOTERICIN B
     Indication: CEREBRAL ASPERGILLOSIS
     Dosage: UNK
     Route: 065
  5. AMPHOTERICIN B. [Suspect]
     Active Substance: AMPHOTERICIN B
     Indication: ASPERGILLUS INFECTION
  6. CASPOFUNGIN [Concomitant]
     Active Substance: CASPOFUNGIN
     Indication: ASPERGILLUS INFECTION
  7. BENDAMUSTINE [Concomitant]
     Active Substance: BENDAMUSTINE
     Indication: CHRONIC LYMPHOCYTIC LEUKAEMIA
     Dosage: UNK,ONE CYCLE
     Route: 042
  8. CASPOFUNGIN [Concomitant]
     Active Substance: CASPOFUNGIN
     Indication: CEREBRAL ASPERGILLOSIS
     Dosage: 150 MILLIGRAM, ONCE A DAY
     Route: 065
  9. VORICONAZOLE. [Suspect]
     Active Substance: VORICONAZOLE
     Dosage: 300 X 2, (REDUCED TO 200 MG B.I.D)
     Route: 048
  10. BENDAMUSTINE [Concomitant]
     Active Substance: BENDAMUSTINE
     Indication: CHRONIC MYELOID LEUKAEMIA
  11. VORICONAZOLE. [Suspect]
     Active Substance: VORICONAZOLE
     Dosage: 300 MILLIGRAM, ONCE A DAY
     Route: 065
  12. VORICONAZOLE. [Suspect]
     Active Substance: VORICONAZOLE
     Indication: ASPERGILLUS INFECTION
     Dosage: 400 MILLIGRAM, ONCE A DAY 200 MG, BID
     Route: 048
  13. VORICONAZOLE. [Suspect]
     Active Substance: VORICONAZOLE
     Dosage: UNK
     Route: 042
  14. VORICONAZOLE. [Suspect]
     Active Substance: VORICONAZOLE
     Dosage: 1200 MILLIGRAM, ONCE A DAY 400 MG, TID
     Route: 065
  15. VORICONAZOLE. [Suspect]
     Active Substance: VORICONAZOLE
     Dosage: 7 MILLIGRAM 7 MG/KG
     Route: 065

REACTIONS (9)
  - Prescribed overdose [Unknown]
  - Generalised tonic-clonic seizure [Unknown]
  - Cholestasis [Unknown]
  - Neutropenia [Unknown]
  - Drug level below therapeutic [Unknown]
  - Off label use [Unknown]
  - Drug level decreased [Not Recovered/Not Resolved]
  - Cerebral aspergillosis [Recovered/Resolved]
  - Treatment failure [Recovered/Resolved]
